FAERS Safety Report 5132070-X (Version None)
Quarter: 2006Q4

REPORT INFORMATION
  Report Type: 
  Country: None (occurrence: None)
  Receive Date: 20061017
  Receipt Date: 20061006
  Transmission Date: 20070319
  Serious: Yes (Other)
  Sender: FDA-Public Use
  Company Number: 2006SP004021

PATIENT
  Age: 75 Year
  Sex: Male

DRUGS (5)
  1. EPTIFIBATIDE (S-P) [Suspect]
     Indication: CARDIAC DISORDER
     Dosage: SEE IMAGE, IV
     Route: 042
  2. EPTIFIBATIDE (S-P) [Suspect]
     Indication: STENT PLACEMENT
     Dosage: SEE IMAGE, IV
     Route: 042
  3. ASPIRIN [Concomitant]
  4. CLOPIDOGREL [Concomitant]
  5. HEPARIN [Concomitant]

REACTIONS (4)
  - HYPOXIA [None]
  - PULMONARY EMBOLISM [None]
  - THROMBOCYTOPENIA [None]
  - THROMBOPHLEBITIS [None]
